FAERS Safety Report 5818877-1 (Version None)
Quarter: 2008Q3

REPORT INFORMATION
  Report Type: 
  Country: None (occurrence: None)
  Receive Date: 20080723
  Receipt Date: 20080718
  Transmission Date: 20090109
  Serious: Yes (Hospitalization, Other)
  Sender: FDA-Public Use
  Company Number: IT-BRISTOL-MYERS SQUIBB COMPANY-14268478

PATIENT
  Age: 64 Year
  Sex: Female

DRUGS (3)
  1. ABILIFY [Suspect]
     Indication: PSYCHOMOTOR HYPERACTIVITY
     Route: 048
     Dates: start: 20080702, end: 20080714
  2. HALOPERIDOL [Concomitant]
     Indication: SCHIZOPHRENIA
     Route: 048
     Dates: start: 20080628, end: 20080714
  3. DELORAZEPAM [Concomitant]
     Indication: ANXIETY
     Route: 048
     Dates: start: 20080628, end: 20080714

REACTIONS (9)
  - ATRIAL FIBRILLATION [None]
  - BLOOD CREATINE PHOSPHOKINASE INCREASED [None]
  - BLOOD CREATININE INCREASED [None]
  - BLOOD GLUCOSE INCREASED [None]
  - CONFUSIONAL STATE [None]
  - DYSPNOEA [None]
  - FIBRIN D DIMER INCREASED [None]
  - MYOGLOBIN BLOOD INCREASED [None]
  - WHITE BLOOD CELL COUNT INCREASED [None]
